FAERS Safety Report 8585424-3 (Version None)
Quarter: 2012Q3

REPORT INFORMATION
  Report Type: 
  Country: None (occurrence: None)
  Receive Date: 20120810
  Receipt Date: 20120807
  Transmission Date: 20120928
  Serious: No
  Sender: FDA-Public Use
  Company Number: US-PFIZER INC-2012193100

PATIENT
  Age: 73 Year
  Sex: Female
  Weight: 71 kg

DRUGS (3)
  1. AMLODIPINE [Concomitant]
     Indication: BLOOD PRESSURE ABNORMAL
     Dosage: 5 MG,DAILY
  2. PRISTIQ [Suspect]
     Indication: MOOD ALTERED
  3. PRISTIQ [Suspect]
     Indication: NERVOUSNESS
     Dosage: 50 MG,DAILY
     Dates: start: 20120101

REACTIONS (1)
  - ANXIETY [None]
